FAERS Safety Report 6892520-5 (Version None)
Quarter: 2010Q3

REPORT INFORMATION
  Report Type: 
  Country: None (occurrence: None)
  Receive Date: 20100731
  Receipt Date: 20080625
  Transmission Date: 20110219
  Serious: Yes (Other)
  Sender: FDA-Public Use
  Company Number: US-PFIZER INC-2008033650

PATIENT
  Sex: Male

DRUGS (6)
  1. NEURONTIN [Suspect]
     Indication: BRACHIAL PLEXUS INJURY
     Dates: start: 20070401, end: 20070601
  2. LYRICA [Suspect]
     Indication: BRACHIAL PLEXUS INJURY
     Route: 048
     Dates: start: 20070601, end: 20071001
  3. LYRICA [Suspect]
     Indication: NEURALGIA
  4. LEXAPRO [Concomitant]
  5. HYDROCODONE BITARTRATE [Concomitant]
     Indication: PAIN
  6. WARFARIN SODIUM [Concomitant]
     Indication: COAGULOPATHY

REACTIONS (8)
  - BLOOD CHOLESTEROL INCREASED [None]
  - BLOOD SODIUM DECREASED [None]
  - BLOOD TRIGLYCERIDES INCREASED [None]
  - DRUG INEFFECTIVE [None]
  - NAUSEA [None]
  - NEURALGIA [None]
  - SOMNOLENCE [None]
  - WEIGHT INCREASED [None]
